FAERS Safety Report 16528840 (Version 2)
Quarter: 2019Q3

REPORT INFORMATION
  Report Type: Spontaneous
  Country: BR (occurrence: BR)
  Receive Date: 20190703
  Receipt Date: 20190801
  Transmission Date: 20191004
  Serious: Yes (Other)
  Sender: FDA-Public Use
  Company Number: BR-BAUSCH-BL-2019-019267

PATIENT
  Age: 37 Year
  Sex: Male

DRUGS (7)
  1. HALDOL [Suspect]
     Active Substance: HALOPERIDOL
     Indication: PRODUCT USED FOR UNKNOWN INDICATION
     Dosage: 80 DOSAGE FORM (DROPS)
     Route: 065
  2. CLOZAPINE. [Suspect]
     Active Substance: CLOZAPINE
     Indication: PRODUCT USED FOR UNKNOWN INDICATION
     Route: 065
  3. WELLBUTRIN XL [Suspect]
     Active Substance: BUPROPION HYDROCHLORIDE
     Indication: DEPENDENCE
     Dosage: FORM OF ADMIN.: PROLONGED-RELEASE TABLET
     Route: 065
  4. FRONTAL [Suspect]
     Active Substance: ALPRAZOLAM
     Indication: PRODUCT USED FOR UNKNOWN INDICATION
     Route: 065
  5. WELLBUTRIN XL [Suspect]
     Active Substance: BUPROPION HYDROCHLORIDE
     Dosage: FORM OF ADMIN.: PROLONGED-RELEASE TABLET, DECREASED
     Route: 065
  6. WELLBUTRIN XL [Suspect]
     Active Substance: BUPROPION HYDROCHLORIDE
     Dosage: FORM OF ADMIN.: PROLONGED-RELEASE TABLET, INCREASED THE DOSE
     Route: 065
  7. WELLBUTRIN XL [Suspect]
     Active Substance: BUPROPION HYDROCHLORIDE
     Dosage: FORM OF ADMIN.: PROLONGED-RELEASE TABLET
     Route: 065

REACTIONS (5)
  - Tremor [Unknown]
  - Tooth infection [Unknown]
  - Insomnia [Unknown]
  - Dental necrosis [Unknown]
  - Chills [Unknown]

NARRATIVE: CASE EVENT DATE: 201808
